FAERS Safety Report 23914586 (Version 1)
Quarter: 2024Q2

REPORT INFORMATION
  Report Type: Spontaneous
  Country: US (occurrence: US)
  Receive Date: 20240529
  Receipt Date: 20240529
  Transmission Date: 20240716
  Serious: Yes (Life-Threatening, Other)
  Sender: FDA-Public Use
  Company Number: US-BAYER-2024A073689

PATIENT
  Age: 64 Year
  Sex: Male

DRUGS (1)
  1. MILK OF MAGNESIA CHERRY [Suspect]
     Active Substance: MAGNESIUM HYDROXIDE
     Indication: Laxative supportive care
     Dosage: 30 ML - 60 ML ONCE A DAY FOR 1 YEAR
     Route: 048

REACTIONS (2)
  - Intestinal perforation [Recovering/Resolving]
  - Product use issue [None]

NARRATIVE: CASE EVENT DATE: 20240107
